FAERS Safety Report 13140171 (Version 1)
Quarter: 2017Q1

REPORT INFORMATION
  Report Type: Report from Study
  Country: DE (occurrence: DE)
  Receive Date: 20170123
  Receipt Date: 20170123
  Transmission Date: 20170428
  Serious: Yes (Death, Life-Threatening, Hospitalization, Other)
  Sender: FDA-Public Use
  Company Number: DE-INCYTE CORPORATION-2017IN000206

PATIENT
  Sex: Female
  Weight: 62 kg

DRUGS (14)
  1. HYDROMORPHONE [Concomitant]
     Active Substance: HYDROMORPHONE
     Indication: ANALGESIC THERAPY
     Dosage: 8 MG, QD
     Route: 065
     Dates: start: 20151102
  2. PANTOPRAZOLE [Concomitant]
     Active Substance: PANTOPRAZOLE SODIUM
     Indication: PRODUCT USED FOR UNKNOWN INDICATION
     Dosage: 40 MG, QD
     Route: 065
     Dates: start: 20151102
  3. INCB018424 [Suspect]
     Active Substance: RUXOLITINIB
     Indication: PRIMARY MYELOFIBROSIS
     Dosage: UNK
     Route: 048
     Dates: start: 20160225, end: 20160503
  4. TORASEMIDE [Concomitant]
     Active Substance: TORSEMIDE
     Indication: CARDIAC FAILURE
     Dosage: 15 MG, QD
     Route: 065
     Dates: start: 20151102
  5. INCB018424 [Suspect]
     Active Substance: RUXOLITINIB
     Dosage: 2 DF, QD (10 MG)UNK
     Route: 048
     Dates: start: 20160531
  6. GLURENORM [Concomitant]
     Indication: DIABETES MELLITUS
     Dosage: 15 MG, QD
     Route: 065
     Dates: start: 20151102
  7. SIMVASTATIN. [Concomitant]
     Active Substance: SIMVASTATIN
     Indication: DIABETES MELLITUS
     Dosage: 10 MG, QD
     Route: 065
     Dates: start: 20151102
  8. MACROGOL [Concomitant]
     Active Substance: POLYETHYLENE GLYCOLS
     Indication: CONSTIPATION
     Dosage: 1 DF, QD
     Route: 065
     Dates: start: 20151102
  9. INCB018424 [Suspect]
     Active Substance: RUXOLITINIB
     Dosage: 2 DF, QD (15 MG)
     Route: 048
     Dates: start: 20160503
  10. VIANI [Concomitant]
     Active Substance: FLUTICASONE PROPIONATE\SALMETEROL XINAFOATE
     Indication: ASTHMA
     Dosage: 550 UG, QD
     Route: 065
     Dates: start: 20151102
  11. CITALOPRAM [Concomitant]
     Active Substance: CITALOPRAM HYDROBROMIDE
     Indication: PRODUCT USED FOR UNKNOWN INDICATION
     Dosage: 10 MG, QD
     Route: 065
     Dates: start: 20151102
  12. RAMIPRIL. [Concomitant]
     Active Substance: RAMIPRIL
     Indication: HYPERTENSION
     Dosage: 10 MG, QD
     Route: 065
     Dates: start: 20151102
  13. MOLSIDOMIN [Concomitant]
     Indication: ANGINA PECTORIS
     Dosage: 16 MG, QD
     Route: 065
     Dates: start: 20151102
  14. HYDROCHLOROTHIAZIDE. [Concomitant]
     Active Substance: HYDROCHLOROTHIAZIDE
     Indication: HYPERTENSION
     Dosage: 25 MG, QD
     Route: 065
     Dates: start: 20151102

REACTIONS (4)
  - Escherichia bacteraemia [Unknown]
  - Multiple organ dysfunction syndrome [Fatal]
  - Escherichia urinary tract infection [Fatal]
  - Urosepsis [Fatal]

NARRATIVE: CASE EVENT DATE: 20170105
